FAERS Safety Report 10060901 (Version 1)
Quarter: 2014Q2

REPORT INFORMATION
  Report Type: Report from Study
  Country: US (occurrence: US)
  Receive Date: 20140404
  Receipt Date: 20140404
  Transmission Date: 20141212
  Serious: No
  Sender: FDA-Public Use
  Company Number: US-ASTRAZENECA-2014SE19467

PATIENT
  Sex: Female

DRUGS (1)
  1. SYMBICORT [Suspect]
     Dosage: 160/4.5 MCG, TWO DOSAGE FORM TWO TIMES A DAY
     Route: 055

REACTIONS (2)
  - Malaise [Unknown]
  - Device misuse [Unknown]
